FAERS Safety Report 10110329 (Version 1)
Quarter: 2014Q2

REPORT INFORMATION
  Report Type: Spontaneous
  Country: IT (occurrence: None)
  Receive Date: 20140423
  Receipt Date: 20140423
  Transmission Date: 20141212
  Serious: Yes (Hospitalization)
  Sender: FDA-Public Use
  Company Number: 2014P1003189

PATIENT
  Age: 12 Year
  Sex: Female

DRUGS (1)
  1. RISPERIDONE [Suspect]
     Indication: BIPOLAR DISORDER
     Dosage: 0.75MG; BID;PO 2 YEARS
     Route: 048

REACTIONS (8)
  - Decreased appetite [None]
  - Asthenia [None]
  - Headache [None]
  - Insomnia [None]
  - Visual impairment [None]
  - Convulsion [None]
  - Hypertension [None]
  - Posterior reversible encephalopathy syndrome [None]
